FAERS Safety Report 4784685-6 (Version None)
Quarter: 2005Q3

REPORT INFORMATION
  Report Type: 
  Country: None (occurrence: None)
  Receive Date: 20050928
  Receipt Date: 20050915
  Transmission Date: 20060218
  Serious: Yes (Other)
  Sender: FDA-Public Use
  Company Number: 2005103728

PATIENT
  Age: 68 Year
  Sex: Female

DRUGS (26)
  1. LIPITOR [Suspect]
     Indication: BLOOD CHOLESTEROL INCREASED
     Dosage: 10 MG (10  MG, 1 IN 1 D)
  2. ACCUPRIL [Suspect]
     Indication: HYPERTENSION
     Dosage: (40 MG)
  3. LOPID [Suspect]
     Indication: ILL-DEFINED DISORDER
  4. QUESTRAN [Suspect]
     Indication: ILL-DEFINED DISORDER
  5. LESCOL [Suspect]
     Indication: ILL-DEFINED DISORDER
  6. PRAVACHOL [Suspect]
     Indication: ILL-DEFINED DISORDER
  7. ZETIA [Concomitant]
  8. MEVACOR [Concomitant]
  9. LUNESTA [Concomitant]
  10. DIAZEPAM [Concomitant]
  11. ALBUTEROL [Concomitant]
  12. AMBIEN [Concomitant]
  13. BUTALBITAL [Concomitant]
  14. FLONASE [Concomitant]
  15. HYDROCODONE (HYDROCODONE) [Concomitant]
  16. HYDROXYZINE [Concomitant]
  17. IMIPRAMINE [Concomitant]
  18. PATANOL [Concomitant]
  19. PREMARIN [Concomitant]
  20. PRILOSEC [Concomitant]
  21. ALL OTHER THERAPEUTIC PRODUCTS (ALL OTHER THERAPEUTIC PRODUCTS) [Concomitant]
  22. PROPOXYPHENE HCL [Concomitant]
  23. PENTOXIFYLLINE [Concomitant]
  24. TRIAMTERENE (TRIAMTERENE) [Concomitant]
  25. ZYRTEC [Concomitant]
  26. ZOCOR [Concomitant]

REACTIONS (15)
  - ANXIETY [None]
  - BIOPSY BONE ABNORMAL [None]
  - BLOOD CHOLESTEROL INCREASED [None]
  - BLOOD IMMUNOGLOBULIN M INCREASED [None]
  - CONDITION AGGRAVATED [None]
  - DRUG EFFECT DECREASED [None]
  - GAMMOPATHY [None]
  - LIPIDS ABNORMAL [None]
  - LYMPHOMA [None]
  - MULTIPLE MYELOMA [None]
  - NEOPLASM MALIGNANT [None]
  - SLEEP DISORDER [None]
  - SYSTEMIC LUPUS ERYTHEMATOSUS [None]
  - WEIGHT DECREASED [None]
  - WEIGHT FLUCTUATION [None]
